FAERS Safety Report 15328506 (Version 1)
Quarter: 2018Q3

REPORT INFORMATION
  Report Type: Spontaneous
  Country: ES (occurrence: ES)
  Receive Date: 20180829
  Receipt Date: 20180829
  Transmission Date: 20181010
  Serious: Yes (Other)
  Sender: FDA-Public Use
  Company Number: ES-TEVA-2018-ES-949159

PATIENT
  Age: 65 Year
  Sex: Male

DRUGS (5)
  1. CAPTOPRIL (3871A) [Suspect]
     Active Substance: CAPTOPRIL
     Route: 048
     Dates: start: 20180705, end: 20180707
  2. CEFOTAXIMA (3840A) [Concomitant]
     Route: 042
     Dates: start: 20180702, end: 20180709
  3. METILPREDNISOLONA (888A) [Concomitant]
     Active Substance: METHYLPREDNISOLONE
     Indication: POSTERIOR REVERSIBLE ENCEPHALOPATHY SYNDROME
     Route: 048
     Dates: start: 20180627
  4. ENALAPRIL MALEATO (2142MA) [Concomitant]
     Active Substance: ENALAPRIL MALEATE
     Route: 048
     Dates: start: 20180703, end: 20180704
  5. LACOSAMIDA (8279A) [Concomitant]
     Route: 042
     Dates: start: 20180629, end: 20180706

REACTIONS (1)
  - Laryngeal oedema [Recovered/Resolved]

NARRATIVE: CASE EVENT DATE: 20180706
